FAERS Safety Report 22834157 (Version 7)
Quarter: 2023Q4

REPORT INFORMATION
  Report Type: Report from Study
  Country: JP (occurrence: JP)
  Receive Date: 20230817
  Receipt Date: 20231211
  Transmission Date: 20240109
  Serious: Yes (Death, Hospitalization, Other)
  Sender: FDA-Public Use
  Company Number: JP-GSKPMS-214119-0457-012

PATIENT

DRUGS (15)
  1. DAPRODUSTAT [Suspect]
     Active Substance: DAPRODUSTAT
     Indication: Nephrogenic anaemia
     Dosage: 2 MG, 1D
     Dates: start: 20220714, end: 20220817
  2. DAPRODUSTAT [Suspect]
     Active Substance: DAPRODUSTAT
     Dosage: 4 MG, 1D
     Dates: start: 20220818, end: 20230105
  3. MIRCERA [Concomitant]
     Active Substance: METHOXY POLYETHYLENE GLYCOL-EPOETIN BETA
     Indication: Nephrogenic anaemia
     Dosage: 25 ?G, Q4W
     Route: 058
     Dates: start: 20220630, end: 20220630
  4. SODIUM FERROUS CITRATE [Concomitant]
     Active Substance: SODIUM FERROUS CITRATE
     Indication: Nephrogenic anaemia
     Dosage: 50 MG, 1D
     Route: 048
     Dates: start: 20220614, end: 20230104
  5. BISOPROLOL [Concomitant]
     Active Substance: BISOPROLOL\BISOPROLOL FUMARATE
     Indication: Hypertension
     Dosage: 0.63 MG, 1D
     Route: 048
     Dates: end: 20230104
  6. ENTRESTO [Concomitant]
     Active Substance: SACUBITRIL\VALSARTAN
     Indication: Hypertension
     Dosage: 200 MG, 1D
     Route: 048
     Dates: end: 20230104
  7. EDOXABAN TOSYLATE [Concomitant]
     Active Substance: EDOXABAN TOSYLATE
     Dosage: UNK
     Route: 048
  8. FAMOTIDINE [Concomitant]
     Active Substance: FAMOTIDINE
     Indication: Prophylaxis against gastrointestinal ulcer
     Dosage: UNK
     Route: 048
  9. MAGNESIUM OXIDE [Concomitant]
     Active Substance: MAGNESIUM OXIDE
     Dosage: UNK
     Route: 048
  10. PANTETHINE [Concomitant]
     Active Substance: PANTETHINE
     Dosage: UNK
     Route: 048
  11. MIGLITOL [Concomitant]
     Active Substance: MIGLITOL
     Dosage: UNK
     Route: 048
  12. EPALRESTAT [Concomitant]
     Active Substance: EPALRESTAT
     Dosage: UNK
     Route: 048
  13. METGLUCO [Concomitant]
     Active Substance: METFORMIN HYDROCHLORIDE
     Dosage: UNK
     Route: 048
  14. AZOSEMIDE [Concomitant]
     Active Substance: AZOSEMIDE
     Dosage: UNK
     Route: 048
  15. TORSEMIDE [Concomitant]
     Active Substance: TORSEMIDE
     Dosage: UNK
     Route: 048

REACTIONS (9)
  - Colon cancer [Fatal]
  - Metastases to liver [Fatal]
  - Cerebral infarction [Fatal]
  - Cardiac failure [Fatal]
  - Abdominal pain [Fatal]
  - Metastases to peritoneum [Fatal]
  - Metastases to lung [Fatal]
  - Prescribed underdose [Unknown]
  - Off label use [Unknown]

NARRATIVE: CASE EVENT DATE: 20221223
